FAERS Safety Report 9680233 (Version 1)
Quarter: 2013Q4

REPORT INFORMATION
  Report Type: Spontaneous
  Country: US (occurrence: US)
  Receive Date: 20131111
  Receipt Date: 20131111
  Transmission Date: 20140711
  Serious: No
  Sender: FDA-Public Use
  Company Number: US-BIOGENIDEC-2013BI095971

PATIENT
  Age: 42 Year
  Sex: Female

DRUGS (2)
  1. AVONEX [Suspect]
     Indication: MULTIPLE SCLEROSIS
     Route: 030
     Dates: start: 20011015
  2. AVONEX [Suspect]
     Indication: MULTIPLE SCLEROSIS
     Route: 030
     Dates: start: 20011115, end: 20131015

REACTIONS (8)
  - Dysarthria [Recovered/Resolved]
  - Multiple sclerosis [Not Recovered/Not Resolved]
  - Lip disorder [Not Recovered/Not Resolved]
  - Cognitive disorder [Unknown]
  - Quality of life decreased [Unknown]
  - Fatigue [Not Recovered/Not Resolved]
  - Chills [Unknown]
  - Multiple sclerosis relapse [Not Recovered/Not Resolved]
